FAERS Safety Report 11132196 (Version 4)
Quarter: 2015Q2

REPORT INFORMATION
  Report Type: Spontaneous
  Country: US (occurrence: US)
  Receive Date: 20150522
  Receipt Date: 20150603
  Transmission Date: 20150821
  Serious: Yes (Hospitalization, Other)
  Sender: FDA-Public Use
  Company Number: PHHY2015US056348

PATIENT
  Age: 60 Year
  Sex: Female

DRUGS (35)
  1. ONDANSETRON [Suspect]
     Active Substance: ONDANSETRON
     Indication: NAUSEA
     Dosage: 4 MG, IV PUSH, Q4HR, PRN (2 ML, LNJECTION)
     Route: 042
  2. BUPROPION [Suspect]
     Active Substance: BUPROPION
     Indication: PRODUCT USED FOR UNKNOWN INDICATION
     Dosage: 150 MG, BID
     Route: 065
  3. DOCUSATE [Suspect]
     Active Substance: DOCUSATE
     Indication: PRODUCT USED FOR UNKNOWN INDICATION
     Dosage: 2 DF, QD
     Route: 048
  4. ACETAMINOPHEN. [Suspect]
     Active Substance: ACETAMINOPHEN
     Indication: PYREXIA
     Dosage: 650 MG (160 MG/5 ML) 20.3, FEED TUBE, Q4HOUR
     Route: 065
  5. LABETALOL [Suspect]
     Active Substance: LABETALOL\LABETALOL HYDROCHLORIDE
     Indication: HYPERTENSION
     Dosage: 5 MG/ML (5 MG, IV, Q15MIN)
     Route: 065
  6. MORPHINE [Suspect]
     Active Substance: MORPHINE
     Indication: PAIN
     Dosage: 2 TO 4 MG, IV PUSH, Q1HR, AS NEEDED
     Route: 042
  7. BACLOFEN INTRATHECAL [Suspect]
     Active Substance: BACLOFEN
     Dosage: 2.99 UG, QD
     Route: 037
  8. HEPARIN SODIUM. [Suspect]
     Active Substance: HEPARIN SODIUM
     Indication: PRODUCT USED FOR UNKNOWN INDICATION
     Route: 065
  9. BUPIVACAIN [Suspect]
     Active Substance: BUPIVACAINE
     Indication: MUSCLE SPASTICITY
     Dosage: 0.5746 MG, QD
     Route: 037
     Dates: start: 2008
  10. ALBUTEROL. [Suspect]
     Active Substance: ALBUTEROL
     Indication: DYSPNOEA
     Dosage: 0.083 %, PRN, NEB  INHALATION, Q4HR
     Route: 055
  11. BISACODYL. [Suspect]
     Active Substance: BISACODYL
     Indication: CONSTIPATION
     Dosage: 1 DF, QD PRN
     Route: 054
  12. POTASSIUM CHLORIDE. [Suspect]
     Active Substance: POTASSIUM CHLORIDE
     Indication: HYPOKALAEMIA
     Dosage: 20 TO 40 MEQ PER PARAMETER, PRN
     Route: 048
  13. TRAMADOL [Suspect]
     Active Substance: TRAMADOL
     Indication: PRODUCT USED FOR UNKNOWN INDICATION
     Route: 065
  14. OXYCODONE [Suspect]
     Active Substance: OXYCODONE
     Dosage: 5 MG, PRN VIA TUBE FEED
     Route: 050
  15. METOPROLOL [Suspect]
     Active Substance: METOPROLOL
     Indication: PRODUCT USED FOR UNKNOWN INDICATION
     Dosage: 25 MG, UNK
     Route: 065
  16. SODIUM CHLORIDE. [Suspect]
     Active Substance: SODIUM CHLORIDE
     Dosage: 0.9 PERCENT, 100 ML/HR, IV,
     Route: 042
  17. ONDANSETRON [Suspect]
     Active Substance: ONDANSETRON
     Indication: VOMITING
     Dosage: 4 MG, IV PUSH, PER DAY, PRN (2 ML, LNJECTION)
     Route: 042
  18. LIPITOR [Suspect]
     Active Substance: ATORVASTATIN CALCIUM
     Indication: PRODUCT USED FOR UNKNOWN INDICATION
     Route: 065
  19. ACETAMINOPHEN. [Suspect]
     Active Substance: ACETAMINOPHEN
     Indication: PYREXIA
     Dosage: 650 MG, PRN (Q4HR)
     Route: 048
  20. ARTIFICIAL TEARS                   /00880201/ [Suspect]
     Active Substance: POLYVINYL ALCOHOL\POVIDONE
     Indication: DRY EYE
     Dosage: 154 DRP, (Q2H) (BOTH EYES) PRN
     Route: 047
  21. NALOXONE [Suspect]
     Active Substance: NALOXONE
     Indication: RESPIRATORY DEPRESSION
     Dosage: 0.2 MG (1 ML INJECTION), IV PUSH, Q2MIN
     Route: 042
  22. POLYETHYLENE GLYCOL 3350. [Suspect]
     Active Substance: POLYETHYLENE GLYCOL 3350
     Indication: CONSTIPATION
     Dosage: 17 G, PRN, DAILY
     Route: 048
  23. CEFEPIME [Suspect]
     Active Substance: CEFEPIME\CEFEPIME HYDROCHLORIDE
     Indication: PRODUCT USED FOR UNKNOWN INDICATION
     Dosage: 33.33 ML/HR, Q12HR (100 ML)
     Route: 042
  24. CLONIDINE. [Suspect]
     Active Substance: CLONIDINE
     Indication: HYPERTENSION
     Dosage: 0.1 MG, PRN (Q6H)
     Route: 048
  25. SERTRALINE [Suspect]
     Active Substance: SERTRALINE HYDROCHLORIDE
     Indication: PRODUCT USED FOR UNKNOWN INDICATION
     Dosage: 100 MG, UNK
     Route: 065
  26. ALBUTEROL. [Suspect]
     Active Substance: ALBUTEROL
     Indication: WHEEZING
  27. LACTULOSE. [Suspect]
     Active Substance: LACTULOSE
     Indication: CONSTIPATION
     Dosage: 20 G (10 G/15 ML) (30 ML), PRN
     Route: 065
  28. OXYCODONE [Suspect]
     Active Substance: OXYCODONE
     Indication: PAIN
     Dosage: 5 MG, PRN (FEED TUBE, Q4HR)
     Route: 048
  29. BACLOFEN INTRATHECAL [Suspect]
     Active Substance: BACLOFEN
     Indication: MUSCLE SPASTICITY
     Dosage: 114.91 UG, QD
     Route: 037
     Dates: start: 2008
  30. SODIUM CHLORIDE. [Suspect]
     Active Substance: SODIUM CHLORIDE
     Indication: NASAL CONGESTION
     Dosage: 0.65 PERCENT, NASAL 45 AT DOSE OF 1 SPRAY, Q4HR, PRN
     Route: 045
  31. FAMOTIDINE. [Suspect]
     Active Substance: FAMOTIDINE
     Indication: PRODUCT USED FOR UNKNOWN INDICATION
     Dosage: 20 MG (2 ML INJECTION), BID, IV PUSH
     Route: 042
  32. ACETYLSALICYLIC ACID [Suspect]
     Active Substance: ASPIRIN
     Indication: PRODUCT USED FOR UNKNOWN INDICATION
     Route: 065
  33. HYDRALAZINE [Suspect]
     Active Substance: HYDRALAZINE HYDROCHLORIDE
     Indication: HYPERTENSION
     Dosage: 10 MG (1 ML INJECTION), Q30MIN, PRN
     Route: 042
  34. BUPIVACAIN [Suspect]
     Active Substance: BUPIVACAINE
     Dosage: 0.015 MG, QD
     Route: 037
  35. COUMADIN [Suspect]
     Active Substance: WARFARIN SODIUM
     Indication: PRODUCT USED FOR UNKNOWN INDICATION
     Route: 065

REACTIONS (12)
  - Unresponsive to stimuli [Unknown]
  - Blood glucose increased [Unknown]
  - Mental status changes [Unknown]
  - Fatigue [Unknown]
  - Confusional state [Unknown]
  - Aspartate aminotransferase increased [Unknown]
  - Blood potassium decreased [Unknown]
  - Overdose [Unknown]
  - Haemoglobin decreased [Unknown]
  - Haematocrit decreased [Unknown]
  - Sedation [Unknown]
  - Loss of consciousness [Unknown]

NARRATIVE: CASE EVENT DATE: 20150501
